FAERS Safety Report 9849204 (Version 1)
Quarter: 2014Q1

REPORT INFORMATION
  Report Type: Spontaneous
  Country: US (occurrence: US)
  Receive Date: 20140128
  Receipt Date: 20140128
  Transmission Date: 20141002
  Serious: No
  Sender: FDA-Public Use
  Company Number: US-ABBVIE-13P-163-1052787-00

PATIENT
  Sex: Male
  Weight: 88.53 kg

DRUGS (3)
  1. LUPRON DEPOT [Suspect]
     Indication: PROSTATE CANCER
     Dates: start: 20100730, end: 20110221
  2. LUPRON DEPOT [Suspect]
     Dates: start: 20110620, end: 20111128
  3. LUPRON DEPOT [Suspect]
     Dates: start: 20130110

REACTIONS (3)
  - Atrial fibrillation [Not Recovered/Not Resolved]
  - Mood swings [Not Recovered/Not Resolved]
  - Lethargy [Not Recovered/Not Resolved]
